FAERS Safety Report 21216435 (Version 1)
Quarter: 2022Q3

REPORT INFORMATION
  Report Type: Spontaneous
  Country: US (occurrence: None)
  Receive Date: 20220815
  Receipt Date: 20220815
  Transmission Date: 20221027
  Serious: Yes (Life-Threatening, Hospitalization, Disabling, Other)
  Sender: FDA-Public Use
  Company Number: None

PATIENT
  Age: 76 Year
  Sex: Female
  Weight: 99 kg

DRUGS (7)
  1. SPRAVATO [Suspect]
     Active Substance: ESKETAMINE
     Indication: Depression
     Dates: start: 20200201, end: 20200801
  2. SYNTHROID [Concomitant]
     Active Substance: LEVOTHYROXINE SODIUM
  3. PROTONS [Concomitant]
  4. ATIVAN [Concomitant]
     Active Substance: LORAZEPAM
  5. LYRICA [Concomitant]
     Active Substance: PREGABALIN
  6. WELLBUTRIN [Concomitant]
     Active Substance: BUPROPION HYDROCHLORIDE
  7. DEPEKOTE [Concomitant]

REACTIONS (5)
  - Agitation [None]
  - Chest pain [None]
  - Burning sensation [None]
  - Loss of therapeutic response [None]
  - Suicide attempt [None]

NARRATIVE: CASE EVENT DATE: 20200901
